FAERS Safety Report 16179107 (Version 1)
Quarter: 2019Q2

REPORT INFORMATION
  Report Type: Spontaneous
  Country: ZA (occurrence: ZA)
  Receive Date: 20190410
  Receipt Date: 20190410
  Transmission Date: 20190711
  Serious: Yes (Hospitalization)
  Sender: FDA-Public Use
  Company Number: PHHY2019ZA079552

PATIENT
  Age: 80 Year
  Sex: Male

DRUGS (1)
  1. SANDOZ K [Suspect]
     Active Substance: POTASSIUM CHLORIDE
     Indication: BLOOD POTASSIUM
     Dosage: 600 MG, UNK
     Route: 048
     Dates: start: 201903

REACTIONS (1)
  - Thrombosis [Unknown]
